FAERS Safety Report 8017234-X (Version None)
Quarter: 2012Q1

REPORT INFORMATION
  Report Type: 
  Country: None (occurrence: None)
  Receive Date: 20120102
  Receipt Date: 20111226
  Transmission Date: 20120608
  Serious: Yes (Hospitalization)
  Sender: FDA-Public Use
  Company Number: PHHY2011AR112951

PATIENT
  Sex: Male

DRUGS (1)
  1. ONBREZ [Suspect]
     Indication: CHRONIC OBSTRUCTIVE PULMONARY DISEASE
     Dosage: UNK

REACTIONS (6)
  - CARDIAC DISORDER [None]
  - BONE FISSURE [None]
  - ACCIDENT [None]
  - INFLAMMATION [None]
  - MUSCLE DISORDER [None]
  - NERVOUSNESS [None]
